FAERS Safety Report 25797489 (Version 2)
Quarter: 2025Q3

REPORT INFORMATION
  Report Type: Report from Study
  Country: CA (occurrence: CA)
  Receive Date: 20250912
  Receipt Date: 20250919
  Transmission Date: 20251020
  Serious: Yes (Other)
  Sender: BAUSCH AND LOMB
  Company Number: CA-BAUSCH-BH-2025-017381

PATIENT
  Age: 63 Year
  Sex: Male

DRUGS (2)
  1. SILIQ [Suspect]
     Active Substance: BRODALUMAB
     Indication: Psoriasis
     Dosage: STRENGTH: 210MG/1.5ML WEEKLY (WEEK 0-2)
     Route: 058
     Dates: start: 20210616, end: 2021
  2. SILIQ [Suspect]
     Active Substance: BRODALUMAB
     Dosage: STRENGTH: 210MG/1.5ML EVERY 2 WEEKS
     Route: 058
     Dates: start: 2021, end: 2025

REACTIONS (2)
  - Hip arthroplasty [Unknown]
  - Intentional product use issue [Unknown]

NARRATIVE: CASE EVENT DATE: 20250101
